FAERS Safety Report 9238946 (Version 2)
Quarter: 2013Q2

REPORT INFORMATION
  Report Type: Spontaneous
  Country: CA (occurrence: CA)
  Receive Date: 20130418
  Receipt Date: 20130506
  Transmission Date: 20140414
  Serious: Yes (Other)
  Sender: FDA-Public Use
  Company Number: CA-GLAXOSMITHKLINE-A1020075A

PATIENT
  Age: 60 Year
  Sex: Female
  Weight: 40.9 kg

DRUGS (2)
  1. NICODERM CQ CLEAR 14MG [Suspect]
     Indication: SMOKING CESSATION THERAPY
     Dosage: 14MG PER DAY
     Route: 062
     Dates: start: 20130406, end: 20130407
  2. NO CONCURRENT MEDICATIONS [Concomitant]

REACTIONS (5)
  - Loss of consciousness [Recovered/Resolved]
  - Neck injury [Recovering/Resolving]
  - Fall [Recovering/Resolving]
  - Insomnia [Recovering/Resolving]
  - Product quality issue [Unknown]
